FAERS Safety Report 9780723 (Version 1)
Quarter: 2013Q4

REPORT INFORMATION
  Report Type: Report from Study
  Country: CA (occurrence: CA)
  Receive Date: 20131224
  Receipt Date: 20131224
  Transmission Date: 20140711
  Serious: Yes (Other)
  Sender: FDA-Public Use
  Company Number: CA-JNJFOC-20131212495

PATIENT
  Age: 24 Year
  Sex: Female
  Weight: 56.9 kg

DRUGS (5)
  1. REMICADE [Suspect]
     Indication: CROHN^S DISEASE
     Route: 042
     Dates: start: 20131218
  2. REMICADE [Suspect]
     Indication: CROHN^S DISEASE
     Route: 042
     Dates: start: 20130410, end: 201311
  3. NEXIUM [Concomitant]
     Route: 065
  4. VITAMIN B [Concomitant]
     Route: 065
  5. TRAMACET [Concomitant]
     Indication: PAIN
     Route: 065

REACTIONS (1)
  - Ulcer [Unknown]
